FAERS Safety Report 5082672-4 (Version None)
Quarter: 2006Q3

REPORT INFORMATION
  Report Type: 
  Country: None (occurrence: None)
  Receive Date: 20060816
  Receipt Date: 20060816
  Transmission Date: 20061208
  Serious: Yes (Hospitalization)
  Sender: FDA-Public Use
  Company Number: None

PATIENT
  Sex: Female
  Weight: 73 kg

DRUGS (2)
  1. BUSULFAN [Suspect]
     Dosage: 1.6 MG
  2. FLUDARABINE PHOSPHATE [Suspect]
     Dosage: 150 MG

REACTIONS (11)
  - BRONCHOPNEUMONIA [None]
  - DIFFUSE ALVEOLAR DAMAGE [None]
  - DISSEMINATED INTRAVASCULAR COAGULATION [None]
  - GAMMA-GLUTAMYLTRANSFERASE INCREASED [None]
  - HAEMORRHAGE [None]
  - HYPERGLYCAEMIA [None]
  - HYPOXIA [None]
  - RENAL FAILURE [None]
  - SEPSIS [None]
  - SHIFT TO THE LEFT [None]
  - SINUSITIS [None]
